FAERS Safety Report 24551452 (Version 2)
Quarter: 2024Q4

REPORT INFORMATION
  Report Type: Spontaneous
  Country: BR (occurrence: BR)
  Receive Date: 20241026
  Receipt Date: 20241104
  Transmission Date: 20250115
  Serious: Yes (Death)
  Sender: ROCHE
  Company Number: BR-ROCHE-10000116000

PATIENT

DRUGS (2)
  1. ATEZOLIZUMAB [Suspect]
     Active Substance: ATEZOLIZUMAB
     Indication: Hepatic cancer
     Route: 065
  2. Bevacizumab Elovie [Concomitant]
     Indication: Hepatic cancer
     Route: 065

REACTIONS (1)
  - Cerebrovascular accident [Fatal]
